FAERS Safety Report 17968659 (Version 1)
Quarter: 2020Q3

REPORT INFORMATION
  Report Type: Spontaneous
  Country: US (occurrence: US)
  Receive Date: 20200701
  Receipt Date: 20200701
  Transmission Date: 20201103
  Serious: Yes (Hospitalization)
  Sender: FDA-Public Use
  Company Number: None

PATIENT
  Age: 52 Year
  Sex: Male

DRUGS (2)
  1. HUMIRA [Suspect]
     Active Substance: ADALIMUMAB
     Indication: RHEUMATOID ARTHRITIS
     Dosage: ?          OTHER FREQUENCY:EVERY 7 DAYS;?
     Dates: start: 20171012
  2. PREDNISONE TAB 10MG [Concomitant]
     Active Substance: PREDNISONE
     Dates: start: 20200527

REACTIONS (1)
  - Surgery [None]

NARRATIVE: CASE EVENT DATE: 20200630
